FAERS Safety Report 10412637 (Version 1)
Quarter: 2014Q3

REPORT INFORMATION
  Report Type: Spontaneous
  Country: FR (occurrence: None)
  Receive Date: 20140825
  Receipt Date: 20140825
  Transmission Date: 20150326
  Serious: Yes (Death)
  Sender: FDA-Public Use
  Company Number: 2014JUB00094

PATIENT
  Age: 72 Year
  Sex: Male

DRUGS (4)
  1. RITUXIMAB (RITUXIMAB) [Suspect]
     Active Substance: RITUXIMAB
     Indication: VASCULITIS
  2. PREDNISONE. [Suspect]
     Active Substance: PREDNISONE
     Indication: SJOGREN^S SYNDROME
  3. RITUXIMAB (RITUXIMAB) [Suspect]
     Active Substance: RITUXIMAB
     Indication: SJOGREN^S SYNDROME
  4. PREDNISONE. [Suspect]
     Active Substance: PREDNISONE
     Indication: VASCULITIS

REACTIONS (3)
  - Febrile neutropenia [None]
  - Toxic shock syndrome [None]
  - Pneumonia streptococcal [None]
